FAERS Safety Report 14738355 (Version 1)
Quarter: 2018Q2

REPORT INFORMATION
  Report Type: Spontaneous
  Country: US (occurrence: US)
  Receive Date: 20180409
  Receipt Date: 20180409
  Transmission Date: 20180711
  Serious: Yes (Hospitalization, Other)
  Sender: FDA-Public Use
  Company Number: US-JNJFOC-20170506708

PATIENT
  Age: 64 Year
  Sex: Male

DRUGS (1)
  1. ITRACONAZOLE. [Suspect]
     Active Substance: ITRACONAZOLE
     Indication: CELLULITIS
     Route: 065

REACTIONS (3)
  - Acute left ventricular failure [Recovering/Resolving]
  - Cardiotoxicity [Recovering/Resolving]
  - Pleural effusion [Recovered/Resolved]
